FAERS Safety Report 16929557 (Version 1)
Quarter: 2019Q4

REPORT INFORMATION
  Report Type: Spontaneous
  Country: US (occurrence: US)
  Receive Date: 20191017
  Receipt Date: 20191017
  Transmission Date: 20200122
  Serious: No
  Sender: FDA-Public Use
  Company Number: US-JNJFOC-20191007479

PATIENT
  Sex: Male

DRUGS (1)
  1. ERLEADA [Suspect]
     Active Substance: APALUTAMIDE
     Indication: PROSTATE CANCER
     Dosage: START DATE ALSO REPORTED AS 24/MAY/2019
     Route: 065
     Dates: start: 20190514

REACTIONS (8)
  - Decreased appetite [Unknown]
  - Balance disorder [Unknown]
  - Rehabilitation therapy [Unknown]
  - Joint injury [Unknown]
  - Fall [Unknown]
  - Dysgeusia [Unknown]
  - Back pain [Unknown]
  - Dizziness [Unknown]
